FAERS Safety Report 23040147 (Version 2)
Quarter: 2023Q4

REPORT INFORMATION
  Report Type: Report from Study
  Country: US (occurrence: US)
  Receive Date: 20231006
  Receipt Date: 20231127
  Transmission Date: 20240109
  Serious: Yes (Congenital Anomaly, Other)
  Sender: FDA-Public Use
  Company Number: US-GILEAD-2023-0646265

PATIENT

DRUGS (2)
  1. EMTRICITABINE\TENOFOVIR DISOPROXIL FUMARATE [Suspect]
     Active Substance: EMTRICITABINE\TENOFOVIR DISOPROXIL FUMARATE
     Indication: HIV infection
     Dosage: UNK
     Route: 064
  2. RALTEGRAVIR [Concomitant]
     Active Substance: RALTEGRAVIR
     Route: 064

REACTIONS (2)
  - Congenital musculoskeletal disorder of spine [Unknown]
  - Foetal exposure during pregnancy [Recovered/Resolved]
